FAERS Safety Report 25952070 (Version 1)
Quarter: 2025Q4

REPORT INFORMATION
  Report Type: Spontaneous
  Country: US (occurrence: None)
  Receive Date: 20251022
  Receipt Date: 20251022
  Transmission Date: 20260118
  Serious: Yes (Hospitalization)
  Sender: FDA-CTU
  Company Number: None

PATIENT
  Sex: Male

DRUGS (11)
  1. HEMLIBRA [Suspect]
     Active Substance: EMICIZUMAB-KXWH
     Indication: Factor VIII deficiency
     Dosage: OTHER QUANTITY : 150MG (1 ML) UNDER THE SKIN ;?FREQUENCY : WEEKLY;?
     Route: 058
     Dates: start: 20241108
  2. ACETAMINOPHEN [Concomitant]
     Active Substance: ACETAMINOPHEN
  3. CALCIUM 500 [Concomitant]
  4. CARVEDILOL [Concomitant]
     Active Substance: CARVEDILOL
  5. DIAZEPAM [Concomitant]
     Active Substance: DIAZEPAM
  6. ERIVEDGE [Concomitant]
     Active Substance: VISMODEGIB
  7. FENTANYL [Concomitant]
     Active Substance: FENTANYL
  8. HEMLIBRA [Concomitant]
     Active Substance: EMICIZUMAB-KXWH
  9. KOVALTRY [Concomitant]
     Active Substance: ANTIHEMOPHILIC FACTOR, HUMAN RECOMBINANT
  10. LI BTAYO [Concomitant]
  11. LOSARTAN POTASSIUM [Concomitant]
     Active Substance: LOSARTAN POTASSIUM

REACTIONS (1)
  - Neoplasm malignant [None]
